FAERS Safety Report 9021752 (Version 1)
Quarter: 2013Q1

REPORT INFORMATION
  Report Type: Spontaneous
  Country: US (occurrence: US)
  Receive Date: 20130119
  Receipt Date: 20130119
  Transmission Date: 20140127
  Serious: No
  Sender: FDA-Public Use
  Company Number: US-ALLERGAN-1206493US

PATIENT
  Age: 44 Year
  Sex: Female

DRUGS (2)
  1. BOTOX COSMETIC [Suspect]
     Indication: SKIN WRINKLING
     Dosage: UNK
     Route: 030
  2. BUPROPION [Concomitant]
     Indication: DEPRESSION
     Dosage: 100 MG, QD
     Route: 048

REACTIONS (2)
  - Neck pain [Recovered/Resolved]
  - Dysphagia [Recovered/Resolved]
